FAERS Safety Report 6760797-2 (Version None)
Quarter: 2010Q2

REPORT INFORMATION
  Report Type: 
  Country: None (occurrence: None)
  Receive Date: 20100608
  Receipt Date: 20100604
  Transmission Date: 20101027
  Serious: Yes (Other)
  Sender: FDA-Public Use
  Company Number: US-MERCK-0910USA02101

PATIENT
  Age: 67 Year
  Sex: Female
  Weight: 60 kg

DRUGS (11)
  1. FOSAMAX [Suspect]
     Indication: OSTEOPOROSIS
     Route: 048
     Dates: start: 20030717, end: 20060301
  2. FOSAMAX [Suspect]
     Indication: OSTEOPENIA
     Route: 048
     Dates: start: 20030717, end: 20060301
  3. FOSAMAX PLUS D [Suspect]
     Indication: OSTEOPENIA
     Route: 048
     Dates: start: 20060301, end: 20071101
  4. FOSAMAX PLUS D [Suspect]
     Route: 048
     Dates: end: 20080301
  5. FOSAMAX PLUS D [Suspect]
     Indication: OSTEOPOROSIS
     Route: 048
     Dates: start: 20060301, end: 20071101
  6. FOSAMAX PLUS D [Suspect]
     Route: 048
     Dates: end: 20080301
  7. CAFERGOT [Concomitant]
     Indication: MIGRAINE
     Route: 065
     Dates: start: 19600101
  8. CALCIUM (UNSPECIFIED) [Concomitant]
     Route: 065
  9. ESTROGENS (UNSPECIFIED) [Concomitant]
     Indication: OESTROGEN DEFICIENCY
     Route: 065
     Dates: end: 20040101
  10. HYDROCODONE [Concomitant]
     Indication: MIGRAINE
     Route: 065
     Dates: start: 19940101
  11. VITAMIN D (UNSPECIFIED) [Concomitant]
     Route: 065

REACTIONS (25)
  - ALOPECIA [None]
  - ANAEMIA [None]
  - ARTHRITIS [None]
  - ARTHROPATHY [None]
  - BONE DENSITY DECREASED [None]
  - COLON ADENOMA [None]
  - DENTAL CARIES [None]
  - DENTAL FISTULA [None]
  - DENTAL NECROSIS [None]
  - DIVERTICULUM [None]
  - GASTROINTESTINAL DISORDER [None]
  - GINGIVAL BLEEDING [None]
  - GINGIVITIS [None]
  - IMPAIRED HEALING [None]
  - INTESTINAL POLYP [None]
  - MIGRAINE [None]
  - MUCOSAL ATROPHY [None]
  - ORAL INFECTION [None]
  - OSTEONECROSIS OF JAW [None]
  - PULPITIS DENTAL [None]
  - SENSITIVITY OF TEETH [None]
  - TOOTH FRACTURE [None]
  - TOOTH RESORPTION [None]
  - TOOTHACHE [None]
  - VAGINAL STRICTURE [None]
